FAERS Safety Report 15592916 (Version 1)
Quarter: 2018Q4

REPORT INFORMATION
  Report Type: Spontaneous
  Country: SE (occurrence: SE)
  Receive Date: 20181107
  Receipt Date: 20181107
  Transmission Date: 20190205
  Serious: Yes (Other)
  Sender: FDA-Public Use
  Company Number: SE-TEVA-2018-SE-972632

PATIENT
  Age: 60 Year
  Sex: Female

DRUGS (4)
  1. MINIDERM 20 % KR?M [Concomitant]
  2. DULOXETINE. [Suspect]
     Active Substance: DULOXETINE
     Indication: DEPRESSION
     Dosage: 30 MILLIGRAM DAILY;
     Route: 048
     Dates: start: 201808, end: 201809
  3. CANODERM 5 % KR?M [Concomitant]
  4. ARCOXIA 60 MG FILMDRAGERAD TABLETT [Concomitant]

REACTIONS (2)
  - Product substitution issue [Recovered/Resolved]
  - Glossodynia [Recovered/Resolved]

NARRATIVE: CASE EVENT DATE: 201808
